FAERS Safety Report 5064590-0 (Version None)
Quarter: 2006Q3

REPORT INFORMATION
  Report Type: 
  Country: None (occurrence: None)
  Receive Date: 20060725
  Receipt Date: 20060712
  Transmission Date: 20061208
  Serious: Yes (Hospitalization)
  Sender: FDA-Public Use
  Company Number: CLOF-10277

PATIENT
  Sex: 0

DRUGS (4)
  1. CLOFARABINE [Suspect]
     Indication: ACUTE LEUKAEMIA
     Dates: start: 20060523
  2. ACETAMINOPHEN [Concomitant]
  3. ALLOPURINOL [Concomitant]
  4. HYDROCORTISONE TAB [Concomitant]

REACTIONS (4)
  - FATIGUE [None]
  - NEUTROPENIA [None]
  - PYREXIA [None]
  - RASH [None]
